FAERS Safety Report 7907882-7 (Version None)
Quarter: 2011Q4

REPORT INFORMATION
  Report Type: 
  Country: None (occurrence: None)
  Receive Date: 20111110
  Receipt Date: 20111102
  Transmission Date: 20120403
  Serious: Yes (Hospitalization)
  Sender: FDA-Public Use
  Company Number: US-US-EMD SERONO, INC.-7093435

PATIENT
  Sex: Male

DRUGS (7)
  1. LISINOPRIL [Concomitant]
     Indication: HYPERTENSION
  2. LANTUS [Concomitant]
     Indication: DIABETES MELLITUS
  3. PROVENTIL GENTLEHALER [Concomitant]
     Indication: ASTHMA
  4. REBIF [Suspect]
     Route: 058
     Dates: start: 20111031
  5. REBIF [Suspect]
     Indication: MULTIPLE SCLEROSIS
     Route: 058
     Dates: start: 20110914, end: 20111010
  6. MICARDIS [Concomitant]
     Indication: HYPERTENSION
  7. NOVOLOG [Concomitant]
     Indication: DIABETES MELLITUS

REACTIONS (3)
  - RESPIRATORY FAILURE [None]
  - PNEUMONIA [None]
  - ASPIRATION [None]
